FAERS Safety Report 4663350-X (Version None)
Quarter: 2005Q2

REPORT INFORMATION
  Report Type: 
  Country: None (occurrence: None)
  Receive Date: 20050517
  Receipt Date: 20050504
  Transmission Date: 20051028
  Serious: Yes (Hospitalization)
  Sender: FDA-Public Use
  Company Number: US-JNJFOC-20050501522

PATIENT
  Sex: Female

DRUGS (13)
  1. DURAGESIC-100 [Suspect]
     Indication: DRUG USE FOR UNKNOWN INDICATION
     Route: 062
  2. BC HEADACHE POWDER [Suspect]
     Route: 049
     Dates: start: 20010101, end: 20041102
  3. BC HEADACHE POWDER [Suspect]
     Route: 049
     Dates: start: 20010101, end: 20041102
  4. BC HEADACHE POWDER [Suspect]
     Indication: MIGRAINE
     Dosage: 1 TO 2 POWDERS (TABLESPOON) PER DAY, EVERY 2 TO 3 MONTHS
     Route: 049
     Dates: start: 20010101, end: 20041102
  5. OXYCODONE HCL [Suspect]
     Indication: FIBROMYALGIA
     Route: 049
  6. ELAVIL [Concomitant]
  7. KLONOPIN [Concomitant]
  8. RANITIDINE [Concomitant]
  9. OXYCONTIN [Concomitant]
  10. AMITRIPTYLINE HYDROCHLORIDE [Concomitant]
     Indication: PAIN
  11. CLONAZEPAM [Concomitant]
     Indication: PAIN
  12. RANITIDINE HYDROCHLORIDE [Concomitant]
  13. NARCOTIC [Concomitant]

REACTIONS (18)
  - ATELECTASIS [None]
  - BLOOD CREATINE PHOSPHOKINASE INCREASED [None]
  - CONFUSIONAL STATE [None]
  - DRUG ABUSER [None]
  - EAR HAEMORRHAGE [None]
  - GASTRIC HAEMORRHAGE [None]
  - GASTRITIS [None]
  - HAEMATEMESIS [None]
  - LETHARGY [None]
  - LOBAR PNEUMONIA [None]
  - LOSS OF CONSCIOUSNESS [None]
  - LUNG INFILTRATION [None]
  - MOUTH HAEMORRHAGE [None]
  - OVERDOSE [None]
  - OXYGEN SATURATION DECREASED [None]
  - PNEUMONIA ASPIRATION [None]
  - PNEUMONITIS [None]
  - SINUS TACHYCARDIA [None]
